FAERS Safety Report 15491444 (Version 2)
Quarter: 2019Q2

REPORT INFORMATION
  Report Type: Spontaneous
  Country: US (occurrence: US)
  Receive Date: 20181012
  Receipt Date: 20190425
  Transmission Date: 20190711
  Serious: Yes (Hospitalization, Other)
  Sender: FDA-Public Use
  Company Number: US-AUROBINDO-AUR-APL-2018-049487

PATIENT

DRUGS (2)
  1. IBUPROFEN. [Suspect]
     Active Substance: IBUPROFEN
     Indication: BACK PAIN
     Dosage: TWO TO THREE PILLS ALMOST ON A DAILY BASIS ()
     Route: 065
  2. PREDNISONE TABLET [Suspect]
     Active Substance: PREDNISONE
     Indication: ASTHMA
     Dosage: SHORT COURSES OF OF PREDNISONE TABLETS FREQUENTLY
     Route: 065

REACTIONS (7)
  - Peptic ulcer [Recovering/Resolving]
  - Haemoglobin decreased [Recovering/Resolving]
  - Duodenal ulcer haemorrhage [Recovered/Resolved]
  - Fistula of small intestine [Recovering/Resolving]
  - Gastrointestinal fistula [Recovering/Resolving]
  - Gastric ulcer [Recovering/Resolving]
  - Hypotension [Recovering/Resolving]
